FAERS Safety Report 22374509 (Version 1)
Quarter: 2023Q2

REPORT INFORMATION
  Report Type: Spontaneous
  Country: CZ (occurrence: CZ)
  Receive Date: 20230526
  Receipt Date: 20230526
  Transmission Date: 20230721
  Serious: Yes (Other)
  Sender: FDA-Public Use
  Company Number: CZ-ALVOGEN-2023091620

PATIENT
  Age: 25 Year
  Sex: Female

DRUGS (9)
  1. LENALIDOMIDE [Suspect]
     Active Substance: LENALIDOMIDE
     Indication: Product used for unknown indication
     Dosage: PARTNER ROUTE OF ADMINISTRATION WAS ORAL
     Route: 048
     Dates: end: 20230502
  2. DEXAMETHASONE [Suspect]
     Active Substance: DEXAMETHASONE
     Indication: Product used for unknown indication
     Dosage: PARTNER ROUTE OF ADMINISTRATION WAS ORAL
     Dates: start: 20210831, end: 20220531
  3. DEXAMETHASONE [Suspect]
     Active Substance: DEXAMETHASONE
     Indication: Product used for unknown indication
     Dosage: PARTNER ROUTE OF ADMINISTRATION WAS ORAL
     Dates: start: 20220607, end: 20230313
  4. DEXAMETHASONE [Suspect]
     Active Substance: DEXAMETHASONE
     Indication: Product used for unknown indication
     Dosage: PARTNER ROUTE OF ADMINISTRATION WAS ORAL
     Dates: start: 20230320, end: 20230502
  5. LENALIDOMIDE [Suspect]
     Active Substance: LENALIDOMIDE
     Indication: Product used for unknown indication
     Dosage: (25 MILLIGRAM(S), 21 IN 28 DAY), PARTNER ROUTE OF ADMINISTRATION WAS OTHER
     Dates: start: 20210824, end: 20220530
  6. LENALIDOMIDE [Suspect]
     Active Substance: LENALIDOMIDE
     Indication: Product used for unknown indication
     Dosage: (10 MILLIGRAM(S), 21 IN 28 DAY), PARTNER ROUTE OF ADMINISTRATION WAS OTHER
     Dates: start: 20220607
  7. DEXAMETHASONE [Suspect]
     Active Substance: DEXAMETHASONE
     Indication: Product used for unknown indication
     Dosage: PARTNER ROUTE OF ADMINISTRATION WAS INTRAVENOUS
     Dates: start: 20210824, end: 20210824
  8. ISATUXIMAB [Suspect]
     Active Substance: ISATUXIMAB
     Indication: Product used for unknown indication
     Dosage: PARTNER ROUTE OF ADMINISTRATION WAS INTRAVENOUS
     Dates: start: 20210824, end: 20230502
  9. FEMIBION [Concomitant]
     Indication: Pregnancy
     Dates: start: 202301

REACTIONS (2)
  - Exposure via body fluid [Unknown]
  - Pregnancy with contraceptive device [Unknown]
